FAERS Safety Report 9106616 (Version 1)
Quarter: 2013Q1

REPORT INFORMATION
  Report Type: Spontaneous
  Country: ES (occurrence: ES)
  Receive Date: 20130221
  Receipt Date: 20130221
  Transmission Date: 20140127
  Serious: Yes (Hospitalization)
  Sender: FDA-Public Use
  Company Number: ES-JNJFOC-20130211666

PATIENT
  Age: 81 Year
  Sex: Female

DRUGS (6)
  1. ZALDIAR [Suspect]
     Indication: PAIN
     Route: 048
     Dates: start: 2011, end: 20120702
  2. IBUPROFEN [Interacting]
     Indication: PAIN
     Route: 048
     Dates: start: 201110, end: 20120702
  3. ACETYLSALICYLIC ACID [Interacting]
     Indication: PAIN
     Route: 048
     Dates: start: 2009, end: 20120702
  4. SIMVASTATIN [Concomitant]
     Indication: HYPERLIPIDAEMIA
     Route: 048
     Dates: start: 2009
  5. ENALAPRIL MALEATE [Concomitant]
     Indication: HYPERTENSION
     Route: 048
     Dates: start: 2006
  6. OMEPRAZOLE [Concomitant]
     Indication: PROPHYLAXIS
     Route: 048
     Dates: start: 2006

REACTIONS (3)
  - Lower gastrointestinal haemorrhage [Recovered/Resolved]
  - Drug interaction [Recovered/Resolved]
  - Drug interaction [Recovered/Resolved]
